FAERS Safety Report 11597240 (Version 1)
Quarter: 2015Q3

REPORT INFORMATION
  Report Type: Spontaneous
  Country: US (occurrence: US)
  Receive Date: 20150916
  Receipt Date: 20150916
  Transmission Date: 20151125
  Serious: No
  Sender: FDA-Public Use
  Company Number: US-ELI_LILLY_AND_COMPANY-US200802000601

PATIENT
  Age: 65 Year
  Sex: Female

DRUGS (6)
  1. CALCIUM [Concomitant]
     Active Substance: CALCIUM
  2. CONDROITINA [Concomitant]
  3. MSM [Concomitant]
     Active Substance: DIMETHYL SULFONE
  4. MULTIVIT [Concomitant]
     Active Substance: VITAMINS
  5. FORTEO [Suspect]
     Active Substance: TERIPARATIDE
     Dates: start: 20080117
  6. GLUCOSAMINE [Concomitant]
     Active Substance: GLUCOSAMINE

REACTIONS (6)
  - Cough [Not Recovered/Not Resolved]
  - Vomiting [Not Recovered/Not Resolved]
  - Nasopharyngitis [Not Recovered/Not Resolved]
  - Injection site erythema [Recovered/Resolved]
  - Pollakiuria [Not Recovered/Not Resolved]
  - Myalgia [Not Recovered/Not Resolved]

NARRATIVE: CASE EVENT DATE: 20080117
